FAERS Safety Report 10241270 (Version 1)
Quarter: 2014Q2

REPORT INFORMATION
  Report Type: Spontaneous
  Country: US (occurrence: US)
  Receive Date: 20140617
  Receipt Date: 20140617
  Transmission Date: 20141212
  Serious: No
  Sender: FDA-Public Use
  Company Number: US-PFIZER INC-2014166000

PATIENT
  Age: 49 Year
  Sex: Male
  Weight: 95 kg

DRUGS (2)
  1. LYRICA [Suspect]
     Indication: NEURALGIA
     Dosage: 50 MG, 4X/DAY
     Route: 048
     Dates: start: 20140608
  2. HYDROCODONE [Concomitant]
     Indication: NEURALGIA
     Dosage: UNK

REACTIONS (1)
  - No adverse event [Unknown]
